FAERS Safety Report 18184255 (Version 1)
Quarter: 2020Q3

REPORT INFORMATION
  Report Type: Spontaneous
  Country: PK (occurrence: PK)
  Receive Date: 20200824
  Receipt Date: 20200824
  Transmission Date: 20201103
  Serious: Yes (Hospitalization, Other)
  Sender: FDA-Public Use
  Company Number: PK-VISTAPHARM, INC.-VER202008-001350

PATIENT
  Age: 29 Year
  Sex: Male

DRUGS (1)
  1. HYDROCODONE AND ACETAMINOPHEN [Suspect]
     Active Substance: ACETAMINOPHEN\HYDROCODONE
     Indication: PRODUCT USED FOR UNKNOWN INDICATION
     Dosage: UNKNOWN

REACTIONS (16)
  - Jaundice [Unknown]
  - Hepatitis fulminant [Unknown]
  - Coagulopathy [Unknown]
  - Ascites [Unknown]
  - Drug-induced liver injury [Unknown]
  - Abdominal pain [Unknown]
  - Overdose [Unknown]
  - Hyperhidrosis [Unknown]
  - Gallbladder oedema [Unknown]
  - Periportal oedema [Unknown]
  - Multiple organ dysfunction syndrome [Unknown]
  - Toxicity to various agents [Unknown]
  - Vomiting [Unknown]
  - Renal function test abnormal [Unknown]
  - Unresponsive to stimuli [Unknown]
  - Neurological symptom [Unknown]
